FAERS Safety Report 7798027-5 (Version None)
Quarter: 2011Q4

REPORT INFORMATION
  Report Type: 
  Country: None (occurrence: None)
  Receive Date: 20111005
  Receipt Date: 20110923
  Transmission Date: 20120403
  Serious: Yes (Hospitalization, Other)
  Sender: FDA-Public Use
  Company Number: US-ELI_LILLY_AND_COMPANY-US201107006449

PATIENT
  Sex: Female

DRUGS (17)
  1. STARLIX [Concomitant]
     Dosage: 120 MG, PRN
  2. LANTUS [Concomitant]
     Indication: DIABETES MELLITUS
     Dosage: 7 IU, OTHER
  3. LASIX [Concomitant]
     Dosage: 40 MG, QD
  4. PLETAL [Concomitant]
     Dosage: 50 MG, BID
  5. FORTEO [Suspect]
     Indication: OSTEOPOROSIS
     Dosage: 20 UG, QD
     Route: 065
     Dates: start: 20091101
  6. FORTEO [Suspect]
     Dosage: 20 UG, QD
     Route: 065
  7. ZETIA [Concomitant]
     Dosage: 10 MG, QD
  8. PLAVIX [Concomitant]
     Dosage: 75 MG, QD
  9. CRESTOR [Concomitant]
     Dosage: 40 MG, QD
  10. SPIRIVA [Concomitant]
     Dosage: 18 UG, PRN
  11. OXYGEN [Concomitant]
     Dosage: 2 L, PRN
  12. IRON [Concomitant]
     Dosage: 150 MG, BID
  13. POTASSIUM CHLORIDE [Concomitant]
     Dosage: 10 MG, TID
  14. COREG [Concomitant]
     Dosage: 25 MG, BID
  15. COUMADIN [Concomitant]
     Dosage: UNK, OTHER
  16. VITAMIN D [Concomitant]
     Dosage: 50000 IU, 2/W
  17. INDURGAN [Concomitant]
     Dosage: 30 MG, QD

REACTIONS (5)
  - ASTHENIA [None]
  - VISUAL IMPAIRMENT [None]
  - HAEMATOCHEZIA [None]
  - HAEMORRHOIDS [None]
  - MALAISE [None]
